FAERS Safety Report 23951737 (Version 2)
Quarter: 2024Q4

REPORT INFORMATION
  Report Type: Spontaneous
  Country: CZ (occurrence: CZ)
  Receive Date: 20240607
  Receipt Date: 20241021
  Transmission Date: 20250114
  Serious: Yes (Other)
  Sender: TEVA
  Company Number: CZ-TEVA-VS-3203568

PATIENT
  Age: 39 Year
  Sex: Female

DRUGS (5)
  1. ETOPOSIDE [Suspect]
     Active Substance: ETOPOSIDE
     Indication: Anaplastic large cell lymphoma T- and null-cell types
     Dosage: BV-CHEP  D1- 3
     Route: 042
     Dates: start: 20210623
  2. DOXORUBICIN [Suspect]
     Active Substance: DOXORUBICIN
     Indication: Anaplastic large cell lymphoma T- and null-cell types
     Dosage: D1
     Route: 042
     Dates: start: 20210623
  3. PREDNISONE [Concomitant]
     Active Substance: PREDNISONE
     Indication: Anaplastic large cell lymphoma T- and null-cell types
     Dosage: D1-5
     Route: 048
  4. FILGRASTIM [Concomitant]
     Active Substance: FILGRASTIM
     Indication: Prophylaxis
     Route: 065
     Dates: start: 20210623
  5. BRENTUXIMAB VEDOTIN [Concomitant]
     Active Substance: BRENTUXIMAB VEDOTIN
     Indication: Anaplastic large cell lymphoma T- and null-cell types
     Dosage: D1
     Route: 042
     Dates: start: 20210623

REACTIONS (9)
  - Neuropathy peripheral [Unknown]
  - Toxicity to various agents [Unknown]
  - Microangiopathy [Recovering/Resolving]
  - Vomiting [Recovering/Resolving]
  - Nausea [Recovering/Resolving]
  - Neutropenia [Recovering/Resolving]
  - Upper respiratory tract infection [Recovering/Resolving]
  - Tonsillitis [Recovering/Resolving]
  - Raynaud^s phenomenon [Recovering/Resolving]
